FAERS Safety Report 9759551 (Version 1)
Quarter: 2013Q4

REPORT INFORMATION
  Report Type: Spontaneous
  Country: US (occurrence: US)
  Receive Date: 20131216
  Receipt Date: 20131216
  Transmission Date: 20140711
  Serious: No
  Sender: FDA-Public Use
  Company Number: US-GILEAD-2010-0028045

PATIENT
  Sex: Female
  Weight: 99.34 kg

DRUGS (22)
  1. LETAIRIS [Suspect]
     Indication: PULMONARY ARTERIAL HYPERTENSION
     Route: 048
     Dates: start: 20091221
  2. ASPIRIN [Concomitant]
  3. CARVEDILOL [Concomitant]
  4. AMLODIPINE [Concomitant]
  5. CRESTOR [Concomitant]
  6. IPRATROPIUM [Concomitant]
  7. ADVAIR [Concomitant]
  8. PROAIR HFA [Concomitant]
  9. ATROVENT [Concomitant]
  10. LORATADINE [Concomitant]
  11. GLIPIZIDE [Concomitant]
  12. ACARBOSE [Concomitant]
  13. LANTUS [Concomitant]
  14. NOVOLOG [Concomitant]
  15. BUPROPION ER [Concomitant]
  16. AMITRIPTYLINE [Concomitant]
  17. OMEPRAZOLE [Concomitant]
  18. LEVOTHYROXINE [Concomitant]
  19. CLOTRIMAZOLE-3 CR [Concomitant]
  20. COLCHICINE [Concomitant]
  21. OXYCODONE [Concomitant]
  22. A-Z MULTIVITAMIN [Concomitant]

REACTIONS (1)
  - Haemoptysis [Unknown]
